FAERS Safety Report 5425240-4 (Version None)
Quarter: 2007Q3

REPORT INFORMATION
  Report Type: 
  Country: None (occurrence: None)
  Receive Date: 20070824
  Receipt Date: 20070814
  Transmission Date: 20080115
  Serious: Yes (Hospitalization)
  Sender: FDA-Public Use
  Company Number: CH-PFIZER INC-2006018581

PATIENT
  Sex: Male

DRUGS (1)
  1. MISOPROSTOL [Suspect]
     Indication: ABORTION INDUCED
     Route: 048
     Dates: start: 20051220, end: 20051220

REACTIONS (3)
  - DRUG EXPOSURE DURING PREGNANCY [None]
  - PREMATURE BABY [None]
  - RESPIRATORY DISTRESS [None]
